FAERS Safety Report 5792528-7 (Version None)
Quarter: 2008Q2

REPORT INFORMATION
  Report Type: 
  Country: None (occurrence: None)
  Receive Date: 20080626
  Receipt Date: 20080617
  Transmission Date: 20081010
  Serious: Yes (Hospitalization)
  Sender: FDA-Public Use
  Company Number: US-AMGEN-US289317

PATIENT
  Sex: Female

DRUGS (5)
  1. ENBREL [Suspect]
     Indication: RHEUMATOID ARTHRITIS
     Route: 058
     Dates: start: 20021125
  2. METHOTREXATE [Concomitant]
     Route: 065
     Dates: start: 20010424
  3. FOLIC ACID [Concomitant]
     Route: 065
     Dates: start: 20010424
  4. LEUCOVORIN CALCIUM [Concomitant]
     Route: 065
  5. PREDNISONE [Concomitant]
     Route: 065

REACTIONS (2)
  - DEHYDRATION [None]
  - UROSEPSIS [None]
